FAERS Safety Report 6328733-0 (Version None)
Quarter: 2009Q3

REPORT INFORMATION
  Report Type: 
  Country: None (occurrence: None)
  Receive Date: 20090826
  Receipt Date: 20090818
  Transmission Date: 20100115
  Serious: Yes (Other)
  Sender: FDA-Public Use
  Company Number: DE-ASTRAZENECA-2009SE08658

PATIENT
  Age: 31 Year
  Sex: Male

DRUGS (1)
  1. PROPOFOL [Suspect]
     Indication: HAEMORRHOID OPERATION
     Route: 042
     Dates: start: 20090301

REACTIONS (1)
  - EPILEPSY [None]
